FAERS Safety Report 16243751 (Version 2)
Quarter: 2019Q2

REPORT INFORMATION
  Report Type: Spontaneous
  Country: US (occurrence: US)
  Receive Date: 20190426
  Receipt Date: 20190614
  Transmission Date: 20190711
  Serious: No
  Sender: FDA-Public Use
  Company Number: US-PFIZER INC-2019174578

PATIENT
  Age: 17 Year
  Sex: Male
  Weight: 90.7 kg

DRUGS (3)
  1. RAPAMUNE [Suspect]
     Active Substance: SIROLIMUS
     Indication: VASCULAR MALFORMATION
     Dosage: 2 MG, 1X/DAY (1MG, TWO TABLETS BY MOUTH ONCE DAILY)
     Route: 048
     Dates: start: 201901
  2. RAPAMUNE [Suspect]
     Active Substance: SIROLIMUS
     Indication: LYMPHATIC DISORDER
     Dosage: 3 MG, 1X/DAY
     Route: 048
     Dates: start: 20190404
  3. RAPAMUNE [Suspect]
     Active Substance: SIROLIMUS
     Indication: CONGENITAL ANOMALY

REACTIONS (2)
  - Drug ineffective for unapproved indication [Unknown]
  - Off label use [Unknown]

NARRATIVE: CASE EVENT DATE: 2019
